FAERS Safety Report 6593104-9 (Version None)
Quarter: 2010Q1

REPORT INFORMATION
  Report Type: 
  Country: None (occurrence: None)
  Receive Date: 20100222
  Receipt Date: 20100128
  Transmission Date: 20100710
  Serious: Yes (Other)
  Sender: FDA-Public Use
  Company Number: US-BAYER-201014412GPV

PATIENT
  Age: 62 Year
  Sex: Female

DRUGS (1)
  1. ALEMTUZUMAB [Suspect]
     Indication: ANGIOIMMUNOBLASTIC T-CELL LYMPHOMA REFRACTORY
     Dates: start: 20080601, end: 20080101

REACTIONS (2)
  - PNEUMONIA CYTOMEGALOVIRAL [None]
  - PNEUMONIA LEGIONELLA [None]
